FAERS Safety Report 8538827-7 (Version None)
Quarter: 2012Q3

REPORT INFORMATION
  Report Type: 
  Country: None (occurrence: None)
  Receive Date: 20120706
  Receipt Date: 20120621
  Transmission Date: 20120928
  Serious: Yes (Hospitalization)
  Sender: FDA-Public Use
  Company Number: 2012PROUSA01484

PATIENT
  Age: 81 Year
  Sex: Male
  Weight: 98.9 kg

DRUGS (14)
  1. METANX (CALCIUM MEFOLINATE, PYRIDOXINE HYDROCHLORIDE, VITAMIN B12 NOS) [Concomitant]
  2. PROVENGE [Suspect]
  3. TRICOR [Concomitant]
  4. GLIMEPIRIDE [Concomitant]
  5. CRESTOR [Concomitant]
  6. MECLIZINE HCL (MECLOZINE HYDROCHLORIDE) [Concomitant]
  7. MIDODRINE HCL (MIDODRINE HYDROCHLORIDE) [Concomitant]
  8. VITAMIN D (COLECALCIFEROL) [Concomitant]
  9. LUPRON [Concomitant]
  10. DULCOLAX [Concomitant]
  11. PROVENGE [Suspect]
     Indication: PROSTATE CANCER METASTATIC
     Dosage: 250 ML, SINGLE, INTRAVENOUS, 250 ML, SINGLE
     Route: 042
     Dates: start: 20120621, end: 20120621
  12. PROVENGE [Suspect]
     Indication: PROSTATE CANCER METASTATIC
     Dosage: 250 ML, SINGLE, INTRAVENOUS, 250 ML, SINGLE
     Route: 042
     Dates: start: 20120524, end: 20120524
  13. JANUVIA [Concomitant]
  14. MUCINEX [Concomitant]

REACTIONS (12)
  - NECK PAIN [None]
  - CHEST PAIN [None]
  - SENSATION OF HEAVINESS [None]
  - CAROTID ARTERY OCCLUSION [None]
  - PALPITATIONS [None]
  - URINARY TRACT INFECTION [None]
  - CONFUSIONAL STATE [None]
  - CEREBRAL ATROPHY [None]
  - CHRONIC OBSTRUCTIVE PULMONARY DISEASE [None]
  - CAROTID ARTERY STENOSIS [None]
  - BLOOD GLUCOSE INCREASED [None]
  - FALL [None]
